FAERS Safety Report 10214098 (Version 1)
Quarter: 2014Q2

REPORT INFORMATION
  Report Type: Report from Study
  Country: US (occurrence: US)
  Receive Date: 20140603
  Receipt Date: 20140603
  Transmission Date: 20141212
  Serious: Yes (Hospitalization, Other)
  Sender: FDA-Public Use
  Company Number: US-ABBVIE-14P-163-1241111-00

PATIENT
  Age: 77 Year
  Sex: Female
  Weight: 52.21 kg

DRUGS (14)
  1. HUMIRA [Suspect]
     Indication: RHEUMATOID ARTHRITIS
     Dates: start: 2004, end: 201405
  2. OXYGEN [Concomitant]
     Indication: CHRONIC OBSTRUCTIVE PULMONARY DISEASE
     Dosage: ALL DAY
  3. VITAMIN D3 [Concomitant]
     Indication: VITAMIN D DEFICIENCY
  4. MULTIVITAMIN WITH MINERALS [Concomitant]
     Indication: PRODUCT USED FOR UNKNOWN INDICATION
  5. OMEPRAZOLE [Concomitant]
     Indication: GASTROOESOPHAGEAL REFLUX DISEASE
  6. FENTANYL [Concomitant]
     Indication: PELVIC FRACTURE
     Dosage: PATCH
     Route: 062
     Dates: start: 201312
  7. ADVAIR [Concomitant]
     Indication: CHRONIC OBSTRUCTIVE PULMONARY DISEASE
  8. GABAPENTIN [Concomitant]
     Indication: HYPOAESTHESIA
  9. GABAPENTIN [Concomitant]
     Indication: PARAESTHESIA
  10. MIRTAZAPINE [Concomitant]
     Indication: DEPRESSION
     Dates: end: 201404
  11. CRESTOR [Concomitant]
     Indication: BLOOD CHOLESTEROL INCREASED
  12. TOPROL [Concomitant]
     Indication: HYPERTENSION
  13. PREDNISONE [Concomitant]
     Indication: RHEUMATOID ARTHRITIS
     Dates: end: 201405
  14. PREDNISONE [Concomitant]
     Dates: start: 201405

REACTIONS (10)
  - Fall [Recovered/Resolved]
  - Pain [Recovering/Resolving]
  - Pelvic fracture [Recovering/Resolving]
  - Spinal fracture [Not Recovered/Not Resolved]
  - Fall [Recovered/Resolved]
  - Joint swelling [Recovered/Resolved]
  - Ankle fracture [Recovered/Resolved]
  - Back pain [Not Recovered/Not Resolved]
  - Decreased appetite [Not Recovered/Not Resolved]
  - Weight decreased [Not Recovered/Not Resolved]
